FAERS Safety Report 22144793 (Version 2)
Quarter: 2023Q2

REPORT INFORMATION
  Report Type: Spontaneous
  Country: FR (occurrence: FR)
  Receive Date: 20230328
  Receipt Date: 20230403
  Transmission Date: 20230722
  Serious: Yes (Hospitalization)
  Sender: FDA-Public Use
  Company Number: None

PATIENT
  Age: 63 Year
  Sex: Female
  Weight: 59.6 kg

DRUGS (15)
  1. LETROZOLE [Suspect]
     Active Substance: LETROZOLE
     Indication: Product used for unknown indication
     Dosage: 2.5 MG, QD
     Route: 065
     Dates: start: 20220521
  2. RITUXIMAB [Suspect]
     Active Substance: RITUXIMAB
     Indication: Non-Hodgkin^s lymphoma
     Dosage: 1 DOSAGE FORM
     Route: 065
     Dates: start: 20220818, end: 20220818
  3. CYCLOPHOSPHAMIDE [Suspect]
     Active Substance: CYCLOPHOSPHAMIDE
     Indication: Non-Hodgkin^s lymphoma
     Dosage: 1 DOSAGE FORM
     Route: 065
     Dates: start: 20220818, end: 20220818
  4. ACETAMINOPHEN [Suspect]
     Active Substance: ACETAMINOPHEN
     Indication: Product used for unknown indication
     Dosage: 1G
     Route: 065
  5. BACTRIM [Suspect]
     Active Substance: SULFAMETHOXAZOLE\TRIMETHOPRIM
     Indication: Product used for unknown indication
     Dosage: 3 DOSAGE FORM, QW (CHAQUE LUNDI - MERCREDI- VENDREDI)
     Route: 048
  6. METHOTREXATE [Suspect]
     Active Substance: METHOTREXATE
     Indication: Non-Hodgkin^s lymphoma
     Dosage: 1 DOSAGE FORM
     Route: 065
     Dates: start: 20220818, end: 20220818
  7. VINCRISTINE SULFATE [Suspect]
     Active Substance: VINCRISTINE SULFATE
     Indication: Non-Hodgkin^s lymphoma
     Dosage: 1 DOSAGE FORM (C5)
     Route: 065
     Dates: start: 20220818, end: 20220818
  8. DOXORUBICIN HYDROCHLORIDE [Suspect]
     Active Substance: DOXORUBICIN HYDROCHLORIDE
     Indication: Non-Hodgkin^s lymphoma
     Dosage: 1 DOSAGE FORM
     Route: 065
     Dates: start: 20220718, end: 20220718
  9. ARANESP [Concomitant]
     Active Substance: DARBEPOETIN ALFA
     Indication: Product used for unknown indication
     Dosage: 1 DOSAGE FORM
     Route: 065
  10. VALACYCLOVIR HYDROCHLORIDE [Concomitant]
     Active Substance: VALACYCLOVIR HYDROCHLORIDE
     Indication: Product used for unknown indication
     Dosage: 1000 MG, 0.5 DAY
     Route: 065
  11. DOSTINEX [Concomitant]
     Active Substance: CABERGOLINE
     Indication: Product used for unknown indication
     Dosage: 1 DOSAGE FORM
     Route: 048
  12. MYFORTIC [Concomitant]
     Active Substance: MYCOPHENOLATE SODIUM
     Indication: Product used for unknown indication
     Dosage: 1 DOSAGE FORM, 0.5 DAY
     Route: 065
  13. AMLODIPINE [Concomitant]
     Active Substance: AMLODIPINE BESYLATE
     Indication: Product used for unknown indication
     Dosage: 5 MG, QD
     Route: 065
  14. PANTOPRAZOLE [Concomitant]
     Active Substance: PANTOPRAZOLE
     Indication: Product used for unknown indication
     Dosage: 80 MG, 0.5 DAYS
     Route: 048
  15. TITANOREINE [Concomitant]
     Active Substance: CARRAGEENAN\TITANIUM\ZINC
     Indication: Product used for unknown indication
     Dosage: 2 DOSAGE FORM, QD
     Route: 065

REACTIONS (1)
  - Hepatic cytolysis [Recovered/Resolved]

NARRATIVE: CASE EVENT DATE: 20220822
